FAERS Safety Report 8324990-X (Version None)
Quarter: 2012Q2

REPORT INFORMATION
  Report Type: 
  Country: None (occurrence: None)
  Receive Date: 20120501
  Receipt Date: 20120409
  Transmission Date: 20120825
  Serious: Yes (Other)
  Sender: FDA-Public Use
  Company Number: US-PFIZER INC-HQWYE186513JUL05

PATIENT
  Sex: Female

DRUGS (3)
  1. PROVERA [Suspect]
     Dosage: UNK
     Route: 048
  2. PREMARIN [Suspect]
     Dosage: UNK
     Route: 048
  3. MEDROXYPROGESTERONE ACETATE [Suspect]
     Dosage: UNK
     Route: 048

REACTIONS (1)
  - BREAST CANCER [None]
